FAERS Safety Report 20736642 (Version 1)
Quarter: 2022Q2

REPORT INFORMATION
  Report Type: Spontaneous
  Country: US (occurrence: US)
  Receive Date: 20220421
  Receipt Date: 20220421
  Transmission Date: 20220721
  Serious: No
  Sender: FDA-Public Use
  Company Number: US-PFIZER INC-202200309253

PATIENT
  Age: 60 Year
  Sex: Female

DRUGS (1)
  1. IBRANCE [Suspect]
     Active Substance: PALBOCICLIB
     Dosage: 75 MG, CYCLIC:75MG BY MOUTH TAKE 1 TABLET (75 MG TOTAL) DAILY FOR 21 DAYS
     Route: 048
     Dates: start: 201910

REACTIONS (1)
  - COVID-19 [Unknown]
